FAERS Safety Report 7282103 (Version 3)
Quarter: 2021Q2

REPORT INFORMATION
  Report Type: Report from Study
  Country: KR (occurrence: KR)
  Receive Date: 20100217
  Receipt Date: 20210527
  Transmission Date: 20210717
  Serious: Yes (Hospitalization, Other)
  Sender: FDA-Public Use
  Company Number: KR-GILEAD-E2B_00000599

PATIENT
  Age: 57 Year
  Sex: Male

DRUGS (11)
  1. ADEFOVIR DIPIVOXIL. [Suspect]
     Active Substance: ADEFOVIR DIPIVOXIL
     Indication: CHRONIC HEPATITIS B
     Dosage: UNK
     Route: 048
     Dates: start: 20051201
  2. SPIRONOLACTONE. [Concomitant]
     Active Substance: SPIRONOLACTONE
     Indication: PRODUCT USED FOR UNKNOWN INDICATION
     Dosage: UNK
     Dates: start: 20050714, end: 20060129
  3. LASIX [Concomitant]
     Active Substance: FUROSEMIDE
     Dates: start: 20051213, end: 20060101
  4. ZEFFIX [Concomitant]
     Active Substance: LAMIVUDINE
     Dates: start: 20050519, end: 20060101
  5. LIVACT [Concomitant]
     Active Substance: AMINO ACIDS, SOURCE UNSPECIFIED
     Dates: start: 20050519
  6. BEARSE [Concomitant]
     Active Substance: DIMETHICONE\PANCRELIPASE\URSODIOL
     Dates: start: 20050519, end: 20060323
  7. ALDACTONE [Concomitant]
     Active Substance: SPIRONOLACTONE
     Dates: start: 20050714, end: 20060129
  8. PROPRANOLOL [Concomitant]
     Active Substance: PROPRANOLOL HYDROCHLORIDE
     Indication: PRODUCT USED FOR UNKNOWN INDICATION
     Dosage: UNK
     Dates: start: 20050519, end: 20060101
  9. LEGALON [Concomitant]
     Active Substance: DIETARY SUPPLEMENT\HERBALS\MILK THISTLE
     Dates: start: 20051210, end: 20060114
  10. URSODEOXYCHOLIC ACID [Concomitant]
     Active Substance: URSODIOL
     Indication: PRODUCT USED FOR UNKNOWN INDICATION
     Dates: start: 20051210, end: 20060119
  11. URSODEOXYCHOLIC ACID [Concomitant]
     Active Substance: URSODIOL
     Dosage: UNK
     Dates: start: 20051210, end: 20060419

REACTIONS (10)
  - Bone marrow failure [Unknown]
  - Ascites [Unknown]
  - Marrow hyperplasia [Unknown]
  - Splenomegaly [Unknown]
  - Hepatic mass [Not Recovered/Not Resolved]
  - Pyrexia [Unknown]
  - Nodule [Unknown]
  - Poikilocytosis [Unknown]
  - Anisocytosis [Unknown]
  - Pancytopenia [Unknown]

NARRATIVE: CASE EVENT DATE: 20051210
